FAERS Safety Report 8382906-4 (Version None)
Quarter: 2012Q2

REPORT INFORMATION
  Report Type: 
  Country: None (occurrence: None)
  Receive Date: 20120524
  Receipt Date: 20120510
  Transmission Date: 20120825
  Serious: Yes (Hospitalization)
  Sender: FDA-Public Use
  Company Number: CH-JNJFOC-20120509271

PATIENT
  Age: 27 Year
  Sex: Male

DRUGS (7)
  1. INVEGA [Suspect]
     Indication: PRODUCT USED FOR UNKNOWN INDICATION
     Route: 048
     Dates: start: 20111101, end: 20111201
  2. ZYPREXA [Concomitant]
     Route: 048
     Dates: start: 20111228, end: 20120116
  3. ZYPREXA [Concomitant]
     Route: 048
     Dates: start: 20120120, end: 20120120
  4. ZYPREXA [Concomitant]
     Route: 048
     Dates: start: 20120117, end: 20120119
  5. ZYPREXA [Concomitant]
     Route: 048
     Dates: start: 20111211, end: 20111214
  6. ZYPREXA [Concomitant]
     Route: 048
     Dates: start: 20090101, end: 20111110
  7. ZYPREXA [Concomitant]
     Route: 048
     Dates: start: 20111215, end: 20111227

REACTIONS (2)
  - PSYCHOMOTOR HYPERACTIVITY [None]
  - AKATHISIA [None]
